FAERS Safety Report 6522891-0 (Version None)
Quarter: 2009Q4

REPORT INFORMATION
  Report Type: 
  Country: None (occurrence: None)
  Receive Date: 20091222
  Receipt Date: 20091210
  Transmission Date: 20100525
  Serious: Yes (Other)
  Sender: FDA-Public Use
  Company Number: 1000010858

PATIENT
  Age: 68 Year
  Sex: Female

DRUGS (2)
  1. ESCITALOPRAM [Suspect]
     Indication: BIPOLAR DISORDER
     Dosage: 1 (1, 1 IN 1 D)
  2. RISPERIDON [Concomitant]

REACTIONS (2)
  - MYELOFIBROSIS [None]
  - THROMBOCYTOPENIA [None]
